FAERS Safety Report 9342217 (Version 1)
Quarter: 2013Q2

REPORT INFORMATION
  Report Type: Spontaneous
  Country: GB (occurrence: None)
  Receive Date: 20130606
  Receipt Date: 20130606
  Transmission Date: 20140414
  Serious: Yes (Life-Threatening, Other)
  Sender: FDA-Public Use
  Company Number: CL-493-2013

PATIENT
  Age: 30 Year
  Sex: Female

DRUGS (2)
  1. METRONIDAZOLE [Suspect]
     Indication: TOOTH ABSCESS
     Route: 048
     Dates: start: 20130509, end: 20130514
  2. AMOXICILLIN [Suspect]
     Indication: TOOTH ABSCESS
     Route: 048

REACTIONS (3)
  - Depressed mood [None]
  - Suicidal behaviour [None]
  - Drug interaction [None]
